FAERS Safety Report 10432675 (Version 1)
Quarter: 2014Q3

REPORT INFORMATION
  Report Type: Spontaneous
  Country: GB (occurrence: None)
  Receive Date: 20140903
  Receipt Date: 20140903
  Transmission Date: 20150326
  Serious: Yes (Hospitalization)
  Sender: FDA-Public Use
  Company Number: 2014000011A

PATIENT
  Sex: Female

DRUGS (4)
  1. OXYCODONE HCL [Suspect]
     Active Substance: OXYCODONE HYDROCHLORIDE
     Indication: PAIN
  2. COPAXONE [Concomitant]
     Active Substance: GLATIRAMER ACETATE
  3. MS CONTIN [Suspect]
     Active Substance: MORPHINE SULFATE
     Indication: PAIN
  4. VALIUM [Concomitant]
     Active Substance: DIAZEPAM

REACTIONS (4)
  - Overdose [None]
  - Confusional state [None]
  - Memory impairment [None]
  - Medical device complication [None]

NARRATIVE: CASE EVENT DATE: 20140509
